FAERS Safety Report 6071284-1 (Version None)
Quarter: 2009Q1

REPORT INFORMATION
  Report Type: 
  Country: None (occurrence: None)
  Receive Date: 20090204
  Receipt Date: 20090119
  Transmission Date: 20090719
  Serious: Yes (Death, Other)
  Sender: FDA-Public Use
  Company Number: 2009EK000013

PATIENT

DRUGS (4)
  1. RETAVASE [Suspect]
     Indication: ACUTE MYOCARDIAL INFARCTION
     Dosage: 5 U;X1;IV
     Route: 042
  2. ASPIRIN [Suspect]
     Indication: ACUTE MYOCARDIAL INFARCTION
     Dosage: 300 MG; ;IV
     Route: 042
  3. HEPARIN [Suspect]
     Indication: ACUTE MYOCARDIAL INFARCTION
     Dosage: 7 U/KG;QH;IV, 40 U/KG;X1;IV
     Route: 042
  4. ABCIXIMAB [Suspect]
     Indication: ACUTE MYOCARDIAL INFARCTION
     Dosage: 0.125 UG/KG; ;IV, 0.25 MG/KG;X1;IV
     Route: 042

REACTIONS (8)
  - ARRHYTHMIA [None]
  - CARDIOGENIC SHOCK [None]
  - CEREBRAL HAEMORRHAGE [None]
  - HAEMORRHAGE [None]
  - HAEMORRHAGIC CEREBRAL INFARCTION [None]
  - INFARCTION [None]
  - ISCHAEMIA [None]
  - ISCHAEMIC CEREBRAL INFARCTION [None]
